FAERS Safety Report 23148861 (Version 2)
Quarter: 2023Q4

REPORT INFORMATION
  Report Type: Report from Study
  Country: CN (occurrence: None)
  Receive Date: 20231106
  Receipt Date: 20231121
  Transmission Date: 20240110
  Serious: Yes (Hospitalization)
  Sender: FDA-Public Use
  Company Number: CN-ROCHE-3449750

PATIENT
  Age: 57 Year
  Sex: Male
  Weight: 60 kg

DRUGS (12)
  1. ATEZOLIZUMAB [Suspect]
     Active Substance: ATEZOLIZUMAB
     Indication: Hepatocellular carcinoma
     Dosage: THE MOST RECENT DOSE OF ATEZOLIZUMAB PRIOR TO EVENT WAS AT 13/OCT/2023, ON 14/NOV/2023 RECEIVED MOST
     Route: 041
     Dates: start: 20230822
  2. BEVACIZUMAB [Suspect]
     Active Substance: BEVACIZUMAB
     Indication: Hepatocellular carcinoma
     Dosage: MOST RECENT DOSE RECEIVED ON 13/OCT/2023, ON 14/NOV/2023 RECEIVED MOST RECENT DOSE OF BEVACIZUMAB.
     Route: 042
     Dates: start: 20230822
  3. ENTECAVIR [Concomitant]
     Active Substance: ENTECAVIR
     Dates: start: 20230725
  4. GLUTAMINE AND GUAIAZULENE SULFONATE SODIUM [Concomitant]
     Dates: start: 20230801
  5. GLUTAMINE AND GUAIAZULENE SULFONATE SODIUM [Concomitant]
     Dates: start: 20230822
  6. BICYCLOL [Concomitant]
     Active Substance: BICYCLOL
     Dates: start: 20230808
  7. PHOSPHOLIPID [Concomitant]
     Active Substance: PHOSPHOLIPID
     Dosage: DOSE 2 OTHER
     Dates: start: 20230808
  8. SODIUM CHLORIDE [Concomitant]
     Active Substance: SODIUM CHLORIDE
     Dates: start: 20231031
  9. PHOSPHOLIPID [Concomitant]
     Active Substance: PHOSPHOLIPID
     Dates: start: 20231031
  10. OMEPRAZOLE SODIUM [Concomitant]
     Active Substance: OMEPRAZOLE SODIUM
     Dates: start: 20231031
  11. INVERT SUGAR [Concomitant]
     Active Substance: INVERT SUGAR
     Dates: start: 20231031
  12. VITAMIN B6 [Concomitant]
     Active Substance: PYRIDOXINE HYDROCHLORIDE

REACTIONS (2)
  - Tumour necrosis [Recovering/Resolving]
  - Infected neoplasm [Recovering/Resolving]

NARRATIVE: CASE EVENT DATE: 20231030
